FAERS Safety Report 9264158 (Version 1)
Quarter: 2013Q2

REPORT INFORMATION
  Report Type: Spontaneous
  Country: MX (occurrence: MX)
  Receive Date: 20130430
  Receipt Date: 20130430
  Transmission Date: 20140414
  Serious: Yes (Hospitalization)
  Sender: FDA-Public Use
  Company Number: MX-B.I. PHARMACEUTICALS,INC./RIDGEFIELD-2013-MX-00152MX

PATIENT
  Sex: Male

DRUGS (1)
  1. PRADAXAR [Suspect]
     Route: 048

REACTIONS (1)
  - Vena cava thrombosis [Unknown]
